FAERS Safety Report 8588211-5 (Version None)
Quarter: 2012Q3

REPORT INFORMATION
  Report Type: 
  Country: None (occurrence: None)
  Receive Date: 20120803
  Receipt Date: 20120803
  Transmission Date: 20120928
  Serious: Yes (Life-Threatening, Other)
  Sender: FDA-Public Use
  Company Number: None

PATIENT
  Age: 18 Year
  Sex: Female

DRUGS (2)
  1. LARIAM [Suspect]
  2. LARIAM [Suspect]
     Indication: MALARIA PROPHYLAXIS
     Dosage: 250 MG ONCE A WEEK PO
     Route: 048
     Dates: start: 20120529

REACTIONS (9)
  - ROAD TRAFFIC ACCIDENT [None]
  - CLAUSTROPHOBIA [None]
  - LOSS OF CONSCIOUSNESS [None]
  - FEELING ABNORMAL [None]
  - THINKING ABNORMAL [None]
  - DELUSION [None]
  - ANGER [None]
  - VIOLENCE-RELATED SYMPTOM [None]
  - DEPRESSION [None]
